FAERS Safety Report 7811108-2 (Version None)
Quarter: 2011Q4

REPORT INFORMATION
  Report Type: 
  Country: None (occurrence: None)
  Receive Date: 20111013
  Receipt Date: 20110929
  Transmission Date: 20120403
  Serious: Yes (Hospitalization, Other)
  Sender: FDA-Public Use
  Company Number: DE-CELGENEUS-062-50794-11100310

PATIENT
  Age: 58 Year
  Sex: Male

DRUGS (2)
  1. VIDAZA [Suspect]
     Indication: ACUTE MYELOID LEUKAEMIA
     Dosage: 75 MILLIGRAM/SQ. METER
     Route: 050
  2. ANTIBIOTICS [Concomitant]
     Indication: OSTEOMYELITIS
     Route: 065

REACTIONS (5)
  - NEUTROPHIL COUNT DECREASED [None]
  - OSTEOMYELITIS [None]
  - ACUTE MYELOID LEUKAEMIA [None]
  - GENERAL PHYSICAL HEALTH DETERIORATION [None]
  - STENOTROPHOMONAS INFECTION [None]
